FAERS Safety Report 17690598 (Version 1)
Quarter: 2020Q2

REPORT INFORMATION
  Report Type: Spontaneous
  Country: US (occurrence: US)
  Receive Date: 20200421
  Receipt Date: 20200421
  Transmission Date: 20200714
  Serious: Yes (Other)
  Sender: FDA-Public Use
  Company Number: US-AUROBINDO-AUR-APL-2020-019556

PATIENT
  Age: 2 Day
  Sex: Female

DRUGS (2)
  1. SOTALOL. [Suspect]
     Active Substance: SOTALOL
     Indication: ATRIAL FLUTTER
     Dosage: UNK
     Route: 048
  2. ESMOLOL [Suspect]
     Active Substance: ESMOLOL HYDROCHLORIDE
     Indication: ATRIAL FLUTTER
     Dosage: UNK, DRIP
     Route: 065

REACTIONS (1)
  - Drug ineffective [Unknown]
